FAERS Safety Report 18839364 (Version 2)
Quarter: 2021Q1

REPORT INFORMATION
  Report Type: Spontaneous
  Country: ZA (occurrence: ZA)
  Receive Date: 20210203
  Receipt Date: 20210205
  Transmission Date: 20210419
  Serious: Yes (Hospitalization, Other)
  Sender: FDA-Public Use
  Company Number: ZA-009507513-2102ZAF000169

PATIENT
  Sex: Male

DRUGS (1)
  1. DAPTOMYCIN. [Suspect]
     Active Substance: DAPTOMYCIN
     Dosage: 500ML (30MIN INFUSION IV)
     Route: 042
     Dates: start: 202012, end: 20210128

REACTIONS (7)
  - Anaphylactic reaction [Recovered/Resolved]
  - Nervous system disorder [Recovered/Resolved]
  - Syncope [Unknown]
  - Tremor [Unknown]
  - Product use in unapproved indication [Unknown]
  - Tremor [Recovered/Resolved]
  - Vomiting [Unknown]

NARRATIVE: CASE EVENT DATE: 202012
